FAERS Safety Report 9036249 (Version 1)
Quarter: 2013Q1

REPORT INFORMATION
  Report Type: Report from Study
  Country: US (occurrence: US)
  Receive Date: 20130129
  Receipt Date: 20130129
  Transmission Date: 20140127
  Serious: No
  Sender: FDA-Public Use
  Company Number: US-ABBOTT-12P-163-0922291-00

PATIENT
  Age: 14 Year
  Sex: Male

DRUGS (10)
  1. HUMIRA 40 MG/0.8 ML PEN [Suspect]
     Indication: CROHN^S DISEASE
     Dates: start: 20120310, end: 20120310
  2. HUMIRA 40 MG/0.8 ML PEN [Suspect]
     Dates: start: 20120324
  3. ASACOL [Concomitant]
     Indication: CROHN^S DISEASE
  4. VITAMIN D3 [Concomitant]
     Indication: VITAMIN SUPPLEMENTATION
  5. IRON [Concomitant]
     Indication: ANAEMIA
     Dosage: PILL
  6. IRON [Concomitant]
     Indication: CROHN^S DISEASE
  7. OMEPRAZOLE [Concomitant]
     Indication: GASTROOESOPHAGEAL REFLUX DISEASE
  8. CENTRUM MULTIVITAMIN [Concomitant]
     Indication: VITAMIN SUPPLEMENTATION
     Dosage: DAILY
  9. PREDNISONE [Concomitant]
     Indication: WEIGHT INCREASED
  10. CYPROHEPTADINE [Concomitant]
     Indication: WEIGHT INCREASED

REACTIONS (3)
  - Fatigue [Not Recovered/Not Resolved]
  - Headache [Recovered/Resolved]
  - Headache [Recovered/Resolved]
